FAERS Safety Report 4435230-6 (Version None)
Quarter: 2004Q3

REPORT INFORMATION
  Report Type: 
  Country: None (occurrence: None)
  Receive Date: 20040827
  Receipt Date: 20040625
  Transmission Date: 20050211
  Serious: Yes (Hospitalization)
  Sender: FDA-Public Use
  Company Number: FR-GLAXOSMITHKLINE-B0336742A

PATIENT
  Age: 37 Year
  Sex: Female

DRUGS (2)
  1. COMBIVIR [Suspect]
     Indication: ANTIVIRAL PROPHYLAXIS
     Dosage: 1UNIT TWICE PER DAY
     Route: 048
     Dates: start: 20040211, end: 20040305
  2. VIRACEPT [Suspect]
     Indication: ANTIVIRAL PROPHYLAXIS
     Dosage: 1250MG TWICE PER DAY
     Route: 048
     Dates: start: 20040211, end: 20040305

REACTIONS (9)
  - ABDOMINAL DISTENSION [None]
  - ABDOMINAL PAIN UPPER [None]
  - ASTHENIA [None]
  - CHROMATURIA [None]
  - CYTOLYTIC HEPATITIS [None]
  - DIARRHOEA [None]
  - FAECES PALE [None]
  - HEPATIC ENZYME INCREASED [None]
  - HEPATITIS [None]
